FAERS Safety Report 7041923-7 (Version None)
Quarter: 2010Q4

REPORT INFORMATION
  Report Type: 
  Country: None (occurrence: None)
  Receive Date: 20101013
  Receipt Date: 20100311
  Transmission Date: 20110411
  Serious: No
  Sender: FDA-Public Use
  Company Number: US-ASTRAZENECA-2010SE10648

PATIENT
  Age: 73 Year
  Sex: Female
  Weight: 72.6 kg

DRUGS (10)
  1. SYMBICORT [Suspect]
     Indication: ASTHMA
     Dosage: TOTAL DAILY DOSE: 160 UG
     Route: 055
     Dates: start: 20091209, end: 20091201
  2. SYMBICORT [Suspect]
     Indication: PNEUMONIA
     Dosage: TOTAL DAILY DOSE: 160 UG
     Route: 055
     Dates: start: 20091209, end: 20091201
  3. NEXIUM [Concomitant]
     Route: 048
  4. SYNTHROID [Concomitant]
  5. DIOVAN [Concomitant]
  6. CARAFATE [Concomitant]
  7. PARAFON FORTE [Concomitant]
  8. REQUIP [Concomitant]
  9. PREDNISONE [Concomitant]
  10. DOXYCYCLINE [Concomitant]

REACTIONS (2)
  - COUGH [None]
  - LUNG DISORDER [None]
